FAERS Safety Report 4461662-6 (Version None)
Quarter: 2004Q3

REPORT INFORMATION
  Report Type: 
  Country: None (occurrence: None)
  Receive Date: 20040924
  Receipt Date: 20040915
  Transmission Date: 20050211
  Serious: Yes (Hospitalization)
  Sender: FDA-Public Use
  Company Number: US-2004-032057

PATIENT
  Sex: 0

DRUGS (1)
  1. YASMIN [Suspect]
     Indication: ORAL CONTRACEPTION
     Dosage: 1 TAB(S), 1X/DAY, INTRA-UTERINE
     Route: 015
     Dates: start: 20031101, end: 20031201

REACTIONS (2)
  - DRUG EXPOSURE DURING PREGNANCY [None]
  - WHITE BLOOD CELL COUNT INCREASED [None]
